FAERS Safety Report 5204434-7 (Version None)
Quarter: 2007Q1

REPORT INFORMATION
  Report Type: 
  Country: None (occurrence: None)
  Receive Date: 20070110
  Receipt Date: 20060324
  Transmission Date: 20070707
  Serious: No
  Sender: FDA-Public Use
  Company Number: US-BRISTOL-MYERS SQUIBB COMPANY-13326293

PATIENT
  Age: 38 Year
  Sex: Male
  Weight: 79 kg

DRUGS (4)
  1. ABILIFY [Suspect]
     Indication: PSYCHOTIC DISORDER
     Route: 048
     Dates: start: 20060201
  2. CLOZARIL [Concomitant]
  3. SEROQUEL [Concomitant]
  4. NEURONTIN [Concomitant]

REACTIONS (1)
  - URINARY RETENTION [None]
